FAERS Safety Report 10021042 (Version 1)
Quarter: 2014Q1

REPORT INFORMATION
  Report Type: Spontaneous
  Country: IT (occurrence: None)
  Receive Date: 20140313
  Receipt Date: 20140313
  Transmission Date: 20141002
  Serious: Yes (Hospitalization)
  Sender: FDA-Public Use
  Company Number: IT-014014

PATIENT
  Age: 75 Year
  Sex: Male

DRUGS (3)
  1. FIRMAGON [Suspect]
     Indication: PROSTATE CANCER
     Dosage: 3 INJECTIONS IN TOTAL (120 MG+80MG), SUBCUTANEOUS),
     Dates: end: 20131130
  2. OKI [Suspect]
  3. SERETIDE [Concomitant]

REACTIONS (14)
  - Hypernatraemia [None]
  - Blood creatinine increased [None]
  - Transaminases increased [None]
  - Swelling [None]
  - Injection site erythema [None]
  - Injection site pain [None]
  - Injection site swelling [None]
  - Nausea [None]
  - Erectile dysfunction [None]
  - Arthralgia [None]
  - Spinal pain [None]
  - Hernia [None]
  - Nasopharyngitis [None]
  - Bronchitis [None]
